FAERS Safety Report 18793097 (Version 1)
Quarter: 2021Q1

REPORT INFORMATION
  Report Type: Spontaneous
  Country: GB (occurrence: GB)
  Receive Date: 20210127
  Receipt Date: 20210127
  Transmission Date: 20210419
  Serious: Yes (Other)
  Sender: FDA-Public Use
  Company Number: GB-TEVA-2021-GB-1871456

PATIENT
  Age: 35 Year
  Sex: Female
  Weight: 109 kg

DRUGS (21)
  1. METRONIDAZOLE. [Concomitant]
     Active Substance: METRONIDAZOLE
     Dates: start: 20201025, end: 20201101
  2. OXYBUTYNIN. [Concomitant]
     Active Substance: OXYBUTYNIN CHLORIDE
     Dosage: 1 DOSAGE FORMS DAILY;
     Dates: start: 20201126
  3. FOSTAIR [Concomitant]
     Active Substance: BECLOMETHASONE\FORMOTEROL
     Dosage: 2 DOSAGE FORMS DAILY;
     Route: 055
     Dates: start: 20200828
  4. LEVOTHYROXINE. [Concomitant]
     Active Substance: LEVOTHYROXINE
     Dosage: 2 DOSAGE FORMS DAILY;
     Dates: start: 20200828
  5. SALBUTAMOL [Concomitant]
     Active Substance: ALBUTEROL
     Dosage: 2 DOSAGE FORMS DAILY;
     Route: 055
     Dates: start: 20200828
  6. SYMBICORT [Concomitant]
     Active Substance: BUDESONIDE\FORMOTEROL FUMARATE DIHYDRATE
     Dosage: 1 DOSAGE FORMS DAILY;
     Route: 055
     Dates: start: 20210111
  7. DIHYDROCODEINE [Concomitant]
     Active Substance: DIHYDROCODEINE
     Dosage: 1 DOSAGE FORMS DAILY; TAKE ONE EVERY 4?6 HRS
     Dates: start: 20201025, end: 20201101
  8. DOXYCYCLINE. [Concomitant]
     Active Substance: DOXYCYCLINE
     Dosage: TWO NOW THEN ONE DAILY
     Dates: start: 20201221, end: 20201228
  9. LACTULOSE. [Concomitant]
     Active Substance: LACTULOSE
     Dosage: 10?15ML
     Dates: start: 20200828
  10. VENTOLIN [Concomitant]
     Active Substance: ALBUTEROL SULFATE
     Dosage: 2 DOSAGE FORMS DAILY;
     Route: 055
     Dates: start: 20210111
  11. VILANTEROL [Suspect]
     Active Substance: VILANTEROL TRIFENATATE
     Route: 065
     Dates: start: 20210111
  12. MEDROXYPROGESTERONE ACETATE. [Concomitant]
     Active Substance: MEDROXYPROGESTERONE ACETATE
     Dosage: USE AS DIRECTED
     Dates: start: 20200103
  13. RELVAR ELLIPTA [Concomitant]
     Active Substance: FLUTICASONE FUROATE\VILANTEROL TRIFENATATE
     Dosage: 1 DOSAGE FORMS DAILY;
     Route: 055
     Dates: start: 20210108, end: 20210111
  14. CEFALEXIN [Concomitant]
     Active Substance: CEPHALEXIN
     Dosage: 1 DOSAGE FORMS DAILY;
     Dates: start: 20201231, end: 20210107
  15. CYCLIZINE [Concomitant]
     Active Substance: CYCLIZINE
     Dosage: 1 DOSAGE FORMS DAILY;
     Dates: start: 20201102, end: 20201107
  16. FLUCONAZOLE. [Concomitant]
     Active Substance: FLUCONAZOLE
     Dosage: 1 DOSAGE FORMS DAILY;
     Dates: start: 20201030, end: 20201106
  17. FLUTICASONE FUROATE [Suspect]
     Active Substance: FLUTICASONE FUROATE
     Dosage: 92 MICROGRAM DAILY;
     Route: 065
     Dates: start: 20210111
  18. CLARITHROMYCIN. [Concomitant]
     Active Substance: CLARITHROMYCIN
     Dosage: 1 DOSAGE FORMS DAILY;
     Dates: start: 20201216, end: 20201223
  19. NYSTATIN. [Concomitant]
     Active Substance: NYSTATIN
     Dosage: 1 ML DAILY;
     Dates: start: 20201216, end: 20201223
  20. OMEPRAZOLE. [Concomitant]
     Active Substance: OMEPRAZOLE
     Dosage: 1 DOSAGE FORMS DAILY;
     Dates: start: 20201130, end: 20201228
  21. PREDNISOLONE. [Concomitant]
     Active Substance: PREDNISOLONE
     Dosage: 6 DOSAGE FORMS DAILY;
     Dates: start: 20201221, end: 20201222

REACTIONS (1)
  - Pruritus [Recovering/Resolving]

NARRATIVE: CASE EVENT DATE: 20210111
